FAERS Safety Report 8419548-8 (Version None)
Quarter: 2012Q2

REPORT INFORMATION
  Report Type: 
  Country: None (occurrence: None)
  Receive Date: 20120604
  Receipt Date: 20120604
  Transmission Date: 20120825
  Serious: Yes (Life-Threatening)
  Sender: FDA-Public Use
  Company Number: None

PATIENT
  Age: 63 Year
  Sex: Female
  Weight: 85.9 kg

DRUGS (2)
  1. DIPRIVAN [Concomitant]
  2. PROPOFOL [Suspect]
     Indication: SEDATIVE THERAPY
     Dosage: ONE TIME IV
     Route: 042
     Dates: start: 20120326, end: 20120326

REACTIONS (6)
  - UNRESPONSIVE TO STIMULI [None]
  - SOMNOLENCE [None]
  - MUSCLE RIGIDITY [None]
  - HYPOTENSION [None]
  - NEUROLEPTIC MALIGNANT SYNDROME [None]
  - TACHYCARDIA [None]
